FAERS Safety Report 20157109 (Version 1)
Quarter: 2021Q4

REPORT INFORMATION
  Report Type: Spontaneous
  Country: CN (occurrence: CN)
  Receive Date: 20211207
  Receipt Date: 20211207
  Transmission Date: 20220303
  Serious: Yes (Death, Other)
  Sender: FDA-Public Use
  Company Number: CN-NAPPMUNDI-GBR-2021-0093045

PATIENT
  Age: 76 Year
  Sex: Male

DRUGS (3)
  1. MS CONTIN [Suspect]
     Active Substance: MORPHINE SULFATE
     Indication: Analgesic therapy
     Dosage: 20 MG, DAILY
     Route: 048
     Dates: start: 20211110, end: 20211111
  2. MORPHINE SULFATE [Suspect]
     Active Substance: MORPHINE SULFATE
     Indication: Analgesic therapy
     Dosage: 10 MG, DAILY
     Route: 048
     Dates: start: 20211109, end: 20211110
  3. LACTULOSE [Concomitant]
     Active Substance: LACTULOSE
     Indication: Constipation
     Dosage: 10 ML, DAILY
     Route: 048
     Dates: start: 20211111, end: 20211111

REACTIONS (6)
  - Death [Fatal]
  - Coma [Fatal]
  - Chest discomfort [Fatal]
  - Dyspnoea [Fatal]
  - Nausea [Unknown]
  - Vomiting [Unknown]

NARRATIVE: CASE EVENT DATE: 20211111
